FAERS Safety Report 8851136 (Version 1)
Quarter: 2012Q4

REPORT INFORMATION
  Report Type: Report from Study
  Country: AU (occurrence: AU)
  Receive Date: 20121019
  Receipt Date: 20121019
  Transmission Date: 20130627
  Serious: Yes (Other)
  Sender: FDA-Public Use
  Company Number: AU-JNJFOC-20121008107

PATIENT
  Sex: Male

DRUGS (13)
  1. STELARA [Suspect]
     Indication: PSORIASIS
     Route: 058
     Dates: start: 20100918
  2. STELARA [Suspect]
     Indication: PSORIASIS
     Route: 058
     Dates: start: 20101211
  3. STELARA [Suspect]
     Indication: PSORIASIS
     Route: 058
     Dates: start: 20110305
  4. STELARA [Suspect]
     Indication: PSORIASIS
     Route: 058
     Dates: start: 20100820
  5. STELARA [Suspect]
     Indication: PSORIASIS
     Route: 058
     Dates: start: 20110528
  6. STELARA [Suspect]
     Indication: PSORIASIS
     Route: 058
     Dates: start: 20110820
  7. STELARA [Suspect]
     Indication: PSORIASIS
     Route: 058
     Dates: start: 20111112
  8. STELARA [Suspect]
     Indication: PSORIASIS
     Route: 058
     Dates: start: 20120204
  9. STELARA [Suspect]
     Indication: PSORIASIS
     Route: 058
     Dates: start: 20120428
  10. STELARA [Suspect]
     Indication: PSORIASIS
     Route: 058
     Dates: start: 20120721
  11. STELARA [Suspect]
     Indication: PSORIASIS
     Route: 058
     Dates: start: 20121013
  12. DILANTIN [Concomitant]
  13. TEGRETOL [Concomitant]

REACTIONS (1)
  - Polymyositis [Unknown]
